FAERS Safety Report 6246688-4 (Version None)
Quarter: 2009Q2

REPORT INFORMATION
  Report Type: 
  Country: None (occurrence: None)
  Receive Date: 20090626
  Receipt Date: 20090624
  Transmission Date: 20091009
  Serious: Yes (Hospitalization)
  Sender: FDA-Public Use
  Company Number: US-B.I. PHARMACEUTICALS,INC./RIDGEFIELD-2009-BP-06147BP

PATIENT
  Sex: Female

DRUGS (9)
  1. SPIRIVA [Suspect]
     Indication: BRONCHITIS CHRONIC
     Dosage: 18 MCG
     Route: 055
     Dates: start: 20030301
  2. SPIRIVA [Suspect]
     Indication: ASTHMA
  3. SPIRIVA [Suspect]
     Indication: INHALATION THERAPY
  4. FLOVENT [Concomitant]
     Indication: BRONCHITIS
     Dosage: 2 PUF
     Route: 055
     Dates: start: 20030401
  5. FLOVENT [Concomitant]
     Indication: ASTHMA
  6. TOPROL-XL [Concomitant]
     Indication: HYPERTENSION
     Dosage: 25 MG
     Route: 048
     Dates: start: 20030101
  7. HYZAAR [Concomitant]
     Indication: HYPERTENSION
     Route: 048
     Dates: start: 20030101
  8. XOPENEX [Concomitant]
     Indication: ASTHMA
     Route: 055
     Dates: start: 20090101
  9. ZOLOFT [Concomitant]
     Indication: DEPRESSION
     Dosage: 50 MG
     Route: 048
     Dates: start: 20080101

REACTIONS (5)
  - ADENOCARCINOMA [None]
  - BLOOD CHOLESTEROL INCREASED [None]
  - BREAST CANCER [None]
  - SPINAL OSTEOARTHRITIS [None]
  - VOCAL CORD POLYP [None]
